FAERS Safety Report 9542194 (Version 2)
Quarter: 2013Q3

REPORT INFORMATION
  Report Type: Spontaneous
  Country: US (occurrence: US)
  Receive Date: 20130923
  Receipt Date: 20130926
  Transmission Date: 20140515
  Serious: No
  Sender: FDA-Public Use
  Company Number: US-009507513-1309USA008528

PATIENT
  Sex: 0

DRUGS (3)
  1. AZASITE [Suspect]
     Indication: EYE DISORDER
     Dosage: 1 DROP IN EACH EYE FOR FIRST 7 DAYS OF EACH MONTH
     Route: 047
  2. TRAVATAN Z [Concomitant]
  3. RESTASIS [Concomitant]

REACTIONS (4)
  - Burning sensation [Unknown]
  - Poor quality drug administered [Unknown]
  - Incorrect product storage [Unknown]
  - Drug prescribing error [Unknown]
